FAERS Safety Report 11429495 (Version 1)
Quarter: 2015Q3

REPORT INFORMATION
  Report Type: Spontaneous
  Country: US (occurrence: US)
  Receive Date: 20150828
  Receipt Date: 20150828
  Transmission Date: 20151125
  Serious: Yes (Other)
  Sender: FDA-Public Use
  Company Number: US-ROCHE-1194534

PATIENT
  Sex: Female

DRUGS (4)
  1. PEGASYS [Suspect]
     Active Substance: PEGINTERFERON ALFA-2A
     Indication: CHRONIC HEPATITIS C
     Route: 065
  2. RIBASPHERE [Suspect]
     Active Substance: RIBAVIRIN
     Indication: CHRONIC HEPATITIS C
     Dosage: IN DIVIDED DOSES 600/600
     Route: 048
     Dates: start: 20130222
  3. RIBAVIRIN. [Suspect]
     Active Substance: RIBAVIRIN
     Indication: CHRONIC HEPATITIS C
     Route: 065
  4. PEGASYS [Suspect]
     Active Substance: PEGINTERFERON ALFA-2A
     Route: 058
     Dates: start: 20130222

REACTIONS (10)
  - Fatigue [Unknown]
  - Nausea [Unknown]
  - Hepatitis C [Unknown]
  - Headache [Unknown]
  - Arthralgia [Unknown]
  - Pain [Unknown]
  - Rheumatoid arthritis [Unknown]
  - Influenza like illness [Unknown]
  - Diarrhoea [Unknown]
  - Vomiting [Unknown]
